FAERS Safety Report 4450564-7 (Version None)
Quarter: 2004Q3

REPORT INFORMATION
  Report Type: 
  Country: None (occurrence: None)
  Receive Date: 20040914
  Receipt Date: 20040831
  Transmission Date: 20050211
  Serious: Yes (Death)
  Sender: FDA-Public Use
  Company Number: 2004060851

PATIENT
  Age: 84 Year

DRUGS (3)
  1. GEODON [Suspect]
     Indication: AGITATION
     Dosage: INTRAMUSCULAR
     Route: 030
  2. ALL OTHER THERAPEUTIC PRODUCTS (ALL OTHER THERAPEUTIC PRODUCTS) [Concomitant]
  3. ANTIBIOTICS (ANTIBIOTICS) [Concomitant]

REACTIONS (1)
  - DEATH [None]
